FAERS Safety Report 7107886-0 (Version None)
Quarter: 2010Q4

REPORT INFORMATION
  Report Type: 
  Country: None (occurrence: None)
  Receive Date: 20101117
  Receipt Date: 20101028
  Transmission Date: 20110411
  Serious: No
  Sender: FDA-Public Use
  Company Number: US-BAYER-201039559NA

PATIENT
  Age: 23 Year
  Sex: Female

DRUGS (1)
  1. MIRENA [Suspect]
     Indication: CONTRACEPTION
     Dosage: FREQUENCY CONTINUOUS
     Route: 015
     Dates: start: 20100101

REACTIONS (3)
  - PREGNANCY WITH CONTRACEPTIVE DEVICE [None]
  - SLUGGISHNESS [None]
  - VOMITING [None]
